APPROVED DRUG PRODUCT: DEFERASIROX
Active Ingredient: DEFERASIROX
Strength: 500MG
Dosage Form/Route: TABLET, FOR SUSPENSION;ORAL
Application: A209433 | Product #003 | TE Code: AB
Applicant: GLENMARK SPECIALTY SA
Approved: Jan 6, 2020 | RLD: No | RS: No | Type: RX